FAERS Safety Report 7370556-8 (Version None)
Quarter: 2011Q1

REPORT INFORMATION
  Report Type: 
  Country: None (occurrence: None)
  Receive Date: 20110323
  Receipt Date: 20110306
  Transmission Date: 20110831
  Serious: No
  Sender: FDA-Public Use
  Company Number: US-BAYER-2011-021388

PATIENT
  Sex: Female
  Weight: 75 kg

DRUGS (8)
  1. AROMASIN [Concomitant]
  2. LOVASTATIN [Concomitant]
  3. CALCIUM [Concomitant]
     Indication: VITAMIN SUPPLEMENTATION
  4. UNKNOWN DRUG [Concomitant]
  5. ALEVE (CAPLET) [Suspect]
     Indication: ARTHRITIS
     Dosage: 1 DF, QD
     Route: 048
     Dates: start: 20110302
  6. MULTI-VITAMINS [Concomitant]
     Indication: VITAMIN SUPPLEMENTATION
  7. BAYER ASPIRIN SUGAR FREE LOW DOSE ENTERIC [Concomitant]
     Dosage: UNK
     Route: 048
     Dates: end: 20110307
  8. ASCORBIC ACID [Concomitant]

REACTIONS (2)
  - ARTHRALGIA [None]
  - DIZZINESS [None]
